FAERS Safety Report 6257712-7 (Version None)
Quarter: 2009Q3

REPORT INFORMATION
  Report Type: 
  Country: None (occurrence: None)
  Receive Date: 20090702
  Receipt Date: 20090623
  Transmission Date: 20100115
  Serious: Yes (Hospitalization, Other)
  Sender: FDA-Public Use
  Company Number: ADE2009-0682

PATIENT
  Age: 61 Year
  Sex: Female

DRUGS (6)
  1. SIMVASTATIN [Suspect]
     Dosage: 40MG, DAILY
  2. CYCLOSPORINE [Suspect]
     Indication: RENAL TRANSPLANT
  3. PREDNISOLONE [Concomitant]
  4. WARFARIN SODIUM [Concomitant]
  5. AZATHIOPRINE [Concomitant]
  6. CYCLOSPORINE [Concomitant]

REACTIONS (4)
  - DRUG LEVEL INCREASED [None]
  - MITOCHONDRIAL MYOPATHY [None]
  - RENAL FAILURE [None]
  - RHABDOMYOLYSIS [None]
